FAERS Safety Report 19293337 (Version 1)
Quarter: 2021Q2

REPORT INFORMATION
  Report Type: Spontaneous
  Country: US (occurrence: US)
  Receive Date: 20210523
  Receipt Date: 20210523
  Transmission Date: 20210717
  Serious: No
  Sender: FDA-Public Use
  Company Number: None

PATIENT
  Age: 82 Year
  Sex: Male
  Weight: 89.3 kg

DRUGS (19)
  1. LASIX [Concomitant]
     Active Substance: FUROSEMIDE
  2. METFORMIN HCL [Concomitant]
     Active Substance: METFORMIN HYDROCHLORIDE
  3. PANTOPRAZOLE SODIUM. [Concomitant]
     Active Substance: PANTOPRAZOLE SODIUM
  4. SELENIMIN [Concomitant]
  5. LOSARTAN POTASSIUM. [Concomitant]
     Active Substance: LOSARTAN POTASSIUM
  6. METOPROLOL TARTRATE. [Concomitant]
     Active Substance: METOPROLOL TARTRATE
  7. ZINC 15 [Concomitant]
  8. GINGER EXTRACT [Concomitant]
  9. STOOL SOFTENER LAXATIVE [Concomitant]
     Active Substance: DOCUSATE SODIUM
  10. FLUOROURACIL. [Concomitant]
     Active Substance: FLUOROURACIL
  11. XGEVA [Concomitant]
     Active Substance: DENOSUMAB
  12. FOLIC ACID. [Concomitant]
     Active Substance: FOLIC ACID
  13. FULPHILA [Concomitant]
     Active Substance: PEGFILGRASTIM-JMDB
  14. MUPIROCIN. [Concomitant]
     Active Substance: MUPIROCIN
  15. PREDNISONE. [Concomitant]
     Active Substance: PREDNISONE
  16. ATORVASTATIN CALCIUM. [Concomitant]
     Active Substance: ATORVASTATIN CALCIUM
  17. CALCIUM [Concomitant]
     Active Substance: CALCIUM
  18. ERLEADA [Suspect]
     Active Substance: APALUTAMIDE
     Indication: PROSTATE CANCER
     Route: 048
     Dates: start: 20210428
  19. VITAMIN D (CHOLECALCIFEROL) [Concomitant]
     Active Substance: CHOLECALCIFEROL

REACTIONS (2)
  - Nausea [None]
  - Abdominal pain upper [None]

NARRATIVE: CASE EVENT DATE: 20210516
